FAERS Safety Report 11015749 (Version 2)
Quarter: 2015Q2

REPORT INFORMATION
  Report Type: Spontaneous
  Country: US (occurrence: US)
  Receive Date: 20150412
  Receipt Date: 20150525
  Transmission Date: 20150821
  Serious: No
  Sender: FDA-Public Use
  Company Number: US-JNJFOC-20141204584

PATIENT
  Sex: Male

DRUGS (1)
  1. SIMPONI [Suspect]
     Active Substance: GOLIMUMAB
     Indication: ANKYLOSING SPONDYLITIS
     Dosage: DOSE: 50
     Route: 058
     Dates: start: 201311

REACTIONS (4)
  - Device malfunction [Unknown]
  - Product packaging issue [Unknown]
  - Medical device complication [Unknown]
  - Drug dose omission [Unknown]
